FAERS Safety Report 21875554 (Version 1)
Quarter: 2023Q1

REPORT INFORMATION
  Report Type: Spontaneous
  Country: IN (occurrence: IN)
  Receive Date: 20230118
  Receipt Date: 20230118
  Transmission Date: 20230417
  Serious: Yes (Hospitalization)
  Sender: FDA-Public Use
  Company Number: IN-MACLEODS PHARMACEUTICALS LTD. KAZAKHSTAN-MAC2023039297

PATIENT

DRUGS (7)
  1. PYRAZINAMIDE [Interacting]
     Active Substance: PYRAZINAMIDE
     Indication: Meningitis tuberculous
     Route: 065
  2. ISONIAZID [Interacting]
     Active Substance: ISONIAZID
     Indication: Meningitis tuberculous
     Dosage: UNK
     Route: 065
  3. RIFAMPIN [Interacting]
     Active Substance: RIFAMPIN
     Indication: Meningitis tuberculous
     Dosage: UNK
     Route: 065
  4. STREPTOMYCIN [Interacting]
     Active Substance: STREPTOMYCIN SULFATE
     Indication: Meningitis tuberculous
     Dosage: UNK
     Route: 065
  5. PHENYTOIN [Interacting]
     Active Substance: PHENYTOIN
     Indication: Generalised tonic-clonic seizure
     Dosage: UNK, QD (5 MG/KG PER DAY)
     Route: 065
  6. PHENYTOIN [Interacting]
     Active Substance: PHENYTOIN
     Dosage: UNK (REDUCED AS PER THE NOMOGRAM)
     Route: 065
  7. PREDNISOLONE [Concomitant]
     Active Substance: PREDNISOLONE
     Indication: Product used for unknown indication
     Dosage: UNK, QD (1 MG/KG PER DAY)
     Route: 048

REACTIONS (7)
  - Dyskinesia [Recovered/Resolved]
  - Chorea [Recovered/Resolved]
  - Ballismus [Recovered/Resolved]
  - Primary cerebellar degeneration [Recovered/Resolved]
  - Hydrocephalus [Recovered/Resolved]
  - Toxicity to various agents [Recovered/Resolved]
  - Drug interaction [Recovered/Resolved]
